FAERS Safety Report 4535689-X (Version None)
Quarter: 2004Q4

REPORT INFORMATION
  Report Type: 
  Country: None (occurrence: None)
  Receive Date: 20041223
  Receipt Date: 20031119
  Transmission Date: 20050328
  Serious: No
  Sender: FDA-Public Use
  Company Number: US-GLAXOSMITHKLINE-A0440383A

PATIENT
  Age: 49 Year
  Sex: Female

DRUGS (3)
  1. FLONASE [Suspect]
     Dosage: 1SPR TWICE PER DAY
     Route: 045
  2. CELEXA [Concomitant]
  3. KLONOPIN [Concomitant]
     Route: 065

REACTIONS (1)
  - TONGUE ULCERATION [None]
